FAERS Safety Report 4404744-7 (Version None)
Quarter: 2004Q3

REPORT INFORMATION
  Report Type: 
  Country: None (occurrence: None)
  Receive Date: 20040722
  Receipt Date: 20040715
  Transmission Date: 20050211
  Serious: Yes (Hospitalization)
  Sender: FDA-Public Use
  Company Number: SK-BRISTOL-MYERS SQUIBB COMPANY-12640405

PATIENT
  Age: 41 Year
  Sex: Female

DRUGS (2)
  1. CETUXIMAB [Suspect]
     Indication: COLORECTAL CANCER METASTATIC
     Dosage: THERAPY INITIATED 13-MAY-2004
     Route: 042
     Dates: start: 20040525, end: 20040525
  2. IRINOTECAN [Suspect]
     Indication: COLORECTAL CANCER METASTATIC
     Dosage: THERAPY INITIATED 13-MAY-2004
     Route: 042
     Dates: start: 20040513, end: 20040513

REACTIONS (1)
  - ARTERIAL THROMBOSIS LIMB [None]
